FAERS Safety Report 19231191 (Version 1)
Quarter: 2021Q2

REPORT INFORMATION
  Report Type: Spontaneous
  Country: US (occurrence: US)
  Receive Date: 20210507
  Receipt Date: 20210507
  Transmission Date: 20210717
  Serious: No
  Sender: FDA-Public Use
  Company Number: US-PERRIGO-21US002404

PATIENT
  Age: 50 Year
  Sex: Female
  Weight: 52.15 kg

DRUGS (4)
  1. PERMETHRIN. [Suspect]
     Active Substance: PERMETHRIN
     Indication: PROPHYLAXIS
     Dosage: UNKNOWN, SINGLE
     Route: 061
     Dates: start: 202011, end: 202011
  2. PERMETHRIN. [Suspect]
     Active Substance: PERMETHRIN
     Dosage: APPROX. 45 G, SINGLE
     Route: 061
     Dates: start: 20201207, end: 20201207
  3. PERMETHRIN. [Suspect]
     Active Substance: PERMETHRIN
     Dosage: APPROX. 45 G, SINGLE
     Route: 061
     Dates: start: 20201220, end: 20201220
  4. PERMETHRIN. [Suspect]
     Active Substance: PERMETHRIN
     Dosage: APPROX. 45 G, 4 TIMES WITHIN TWO WEEKS
     Route: 061
     Dates: start: 202011, end: 202011

REACTIONS (3)
  - Off label use [Recovered/Resolved]
  - Accidental exposure to product [Recovered/Resolved]
  - Paraesthesia [Not Recovered/Not Resolved]

NARRATIVE: CASE EVENT DATE: 202011
